FAERS Safety Report 9462247 (Version 1)
Quarter: 2013Q3

REPORT INFORMATION
  Report Type: Spontaneous
  Country: US (occurrence: None)
  Receive Date: 20130813
  Receipt Date: 20130813
  Transmission Date: 20140515
  Serious: Yes (Hospitalization)
  Sender: FDA-Public Use
  Company Number: 2013AP007203

PATIENT
  Age: 54 Year
  Sex: 0

DRUGS (6)
  1. ALENDRONATE SODIUM TABLETS [Suspect]
     Indication: OSTEOPOROSIS
  2. TENOFOVIR [Suspect]
     Indication: HIV INFECTION
  3. TENOFOVIR [Concomitant]
  4. LAMIVUDINE W/NEVIRAPINE/ZIDOVUDINE [Concomitant]
  5. CALCIUM CARBONATE [Concomitant]
  6. VIT D [Concomitant]

REACTIONS (3)
  - Pathological fracture [None]
  - Fractured sacrum [None]
  - Fanconi syndrome [None]
